FAERS Safety Report 7064859-4 (Version None)
Quarter: 2010Q4

REPORT INFORMATION
  Report Type: 
  Country: None (occurrence: None)
  Receive Date: 20101027
  Receipt Date: 20101014
  Transmission Date: 20110411
  Serious: Yes (Other)
  Sender: FDA-Public Use
  Company Number: US-ELI_LILLY_AND_COMPANY-US201010004533

PATIENT
  Age: 20 Year
  Sex: Female

DRUGS (4)
  1. STRATTERA [Suspect]
     Indication: ATTENTION DEFICIT/HYPERACTIVITY DISORDER
  2. VALIUM [Concomitant]
     Dosage: 2 MG, EACH MORNING
  3. VALIUM [Concomitant]
     Dosage: 10 MG, EACH EVENING
  4. LAMOTRIGINE [Concomitant]
     Dosage: 25 MG, UNK

REACTIONS (2)
  - BIPOLAR I DISORDER [None]
  - DYSPHORIA [None]
